FAERS Safety Report 4432912-7 (Version None)
Quarter: 2004Q3

REPORT INFORMATION
  Report Type: 
  Country: None (occurrence: None)
  Receive Date: 20040825
  Receipt Date: 20030929
  Transmission Date: 20050211
  Serious: Yes (Hospitalization, Other)
  Sender: FDA-Public Use
  Company Number: US-MERCK-0310USA00142

PATIENT
  Age: 47 Year
  Sex: Male
  Weight: 191 kg

DRUGS (23)
  1. ACETAMINOPHEN AND HYDROCODONE BITARTRATE [Concomitant]
     Route: 065
  2. DARVOCET-N 100 [Concomitant]
     Indication: PAIN
     Route: 065
  3. NORVASC [Concomitant]
     Route: 065
  4. CELEBREX [Concomitant]
     Route: 065
     Dates: end: 20010101
  5. CLONIDINE [Concomitant]
     Route: 065
  6. PROZAC [Concomitant]
     Indication: DEPRESSION
     Route: 065
  7. FLONASE [Concomitant]
     Route: 065
  8. LASIX [Concomitant]
     Route: 065
  9. NEURONTIN [Concomitant]
     Route: 065
  10. GLUCOTROL XL [Concomitant]
     Route: 065
  11. HYZAAR [Concomitant]
     Route: 048
  12. HUMULIN N [Concomitant]
     Route: 065
  13. HUMULIN N [Concomitant]
     Route: 065
  14. HUMALOG [Concomitant]
     Route: 058
  15. HUMALOG [Concomitant]
     Route: 058
  16. IMDUR [Concomitant]
     Route: 065
  17. CLARITIN [Concomitant]
     Route: 065
  18. GLUCOPHAGE [Concomitant]
     Route: 065
  19. METHOCARBAMOL [Concomitant]
     Route: 065
  20. GLYSET [Concomitant]
     Route: 065
  21. NITROQUICK [Concomitant]
     Route: 060
  22. VIOXX [Suspect]
     Indication: PAIN
     Route: 048
     Dates: start: 20000101
  23. AVANDIA [Concomitant]
     Route: 065

REACTIONS (34)
  - ACUTE STRESS DISORDER [None]
  - ANAEMIA [None]
  - ANAL FISSURE [None]
  - ATHEROSCLEROSIS [None]
  - BACK PAIN [None]
  - BENIGN PROSTATIC HYPERPLASIA [None]
  - BLINDNESS [None]
  - BLOOD CREATINE PHOSPHOKINASE MB INCREASED [None]
  - BLOOD URINE PRESENT [None]
  - BRONCHITIS ACUTE [None]
  - CELLULITIS [None]
  - CHEST PAIN [None]
  - DIABETES MELLITUS INADEQUATE CONTROL [None]
  - DIABETIC NEUROPATHY [None]
  - DIABETIC RETINOPATHY [None]
  - EMOTIONAL DISTRESS [None]
  - FALL [None]
  - GASTRITIS EROSIVE [None]
  - GASTROINTESTINAL HAEMORRHAGE [None]
  - GASTROOESOPHAGEAL REFLUX DISEASE [None]
  - HAEMATURIA [None]
  - HAEMORRHOIDS [None]
  - HIATUS HERNIA [None]
  - LEUKOCYTOSIS [None]
  - LOCALISED INFECTION [None]
  - LOSS OF CONSCIOUSNESS [None]
  - MICROCYTOSIS [None]
  - MYOCARDIAL ISCHAEMIA [None]
  - PHARYNGITIS [None]
  - PNEUMONIA [None]
  - PROSTATITIS [None]
  - SPINAL COLUMN STENOSIS [None]
  - SYNCOPE [None]
  - URETHRAL DISCHARGE [None]
